FAERS Safety Report 8027567-9 (Version None)
Quarter: 2012Q1

REPORT INFORMATION
  Report Type: 
  Country: None (occurrence: None)
  Receive Date: 20120106
  Receipt Date: 20120102
  Transmission Date: 20120608
  Serious: Yes (Hospitalization)
  Sender: FDA-Public Use
  Company Number: US-COVIDIEN/TYCO HEALTHCARE/MALLINCKRODT-T201200009

PATIENT

DRUGS (1)
  1. FENTANYL-100 [Suspect]

REACTIONS (2)
  - CONVULSION [None]
  - CHEST PAIN [None]
